FAERS Safety Report 9358079 (Version 1)
Quarter: 2013Q2

REPORT INFORMATION
  Report Type: Spontaneous
  Country: US (occurrence: US)
  Receive Date: 20130620
  Receipt Date: 20130620
  Transmission Date: 20140414
  Serious: No
  Sender: FDA-Public Use
  Company Number: US-PFIZER INC-2013181084

PATIENT
  Age: 77 Year
  Sex: Female
  Weight: 59.86 kg

DRUGS (2)
  1. TOLTERODINE TARTRATE [Suspect]
     Indication: MICTURITION URGENCY
     Dosage: UNK
  2. VESICARE [Suspect]
     Indication: MICTURITION URGENCY
     Dosage: 05 MG, 1X/DAY
     Dates: start: 20130604

REACTIONS (1)
  - Drug ineffective [Unknown]
